FAERS Safety Report 22593570 (Version 2)
Quarter: 2023Q2

REPORT INFORMATION
  Report Type: Report from Study
  Country: US (occurrence: US)
  Receive Date: 20230613
  Receipt Date: 20230616
  Transmission Date: 20230722
  Serious: Yes (Hospitalization, Other)
  Sender: FDA-Public Use
  Company Number: US-China IPSEN SC-2023-14083

PATIENT
  Age: 13 Year
  Sex: Male
  Weight: 54.4 kg

DRUGS (13)
  1. ONIVYDE [Suspect]
     Active Substance: IRINOTECAN HYDROCHLORIDE
     Indication: Sarcoma
     Dosage: ONCE
     Route: 042
     Dates: start: 20230525
  2. TALAZOPARIB [Suspect]
     Active Substance: TALAZOPARIB
     Indication: Sarcoma
     Route: 048
     Dates: start: 20230525
  3. TALAZOPARIB [Suspect]
     Active Substance: TALAZOPARIB
     Dosage: DAYS 2-6
     Route: 048
     Dates: start: 20230530
  4. DIPHENHYDRAMINE [Concomitant]
     Active Substance: DIPHENHYDRAMINE
     Indication: Antiallergic therapy
     Route: 048
     Dates: start: 20230530
  5. DIPHENHYDRAMINE [Concomitant]
     Active Substance: DIPHENHYDRAMINE
     Indication: Antiemetic supportive care
     Route: 042
     Dates: start: 20230603, end: 20230605
  6. LORAZEPAM [Concomitant]
     Active Substance: LORAZEPAM
     Indication: Vomiting
     Dates: start: 20230530
  7. LORAZEPAM [Concomitant]
     Active Substance: LORAZEPAM
     Route: 042
     Dates: start: 20230603, end: 20230605
  8. LOPERAMIDE [Concomitant]
     Active Substance: LOPERAMIDE
     Indication: Diarrhoea
     Route: 048
     Dates: start: 20230525
  9. SULFAMETHOXAZOLE\TRIMETHOPRIM [Concomitant]
     Active Substance: SULFAMETHOXAZOLE\TRIMETHOPRIM
     Indication: Prophylaxis
     Dosage: BID MON/TUE/WED
     Route: 048
     Dates: start: 20230524
  10. METHADONE [Concomitant]
     Active Substance: METHADONE HYDROCHLORIDE
     Indication: Pain
     Route: 048
     Dates: start: 20230524
  11. SIMETHICONE (DIMETHICONE) [Concomitant]
     Active Substance: DIMETHICONE
     Indication: Flatulence
     Route: 048
     Dates: start: 20230604
  12. CEFIXIME [Concomitant]
     Active Substance: CEFIXIME
     Indication: Prophylaxis
     Route: 048
     Dates: start: 20230526, end: 20230604
  13. GABAPENTIN [Concomitant]
     Active Substance: GABAPENTIN
     Indication: Pain
     Route: 048
     Dates: start: 20230426

REACTIONS (7)
  - Colitis [Not Recovered/Not Resolved]
  - Abdominal pain [Unknown]
  - Febrile neutropenia [Not Recovered/Not Resolved]
  - Nausea [Unknown]
  - Vomiting [Unknown]
  - Coronavirus infection [Unknown]
  - Pyrexia [Unknown]

NARRATIVE: CASE EVENT DATE: 20230603
